FAERS Safety Report 7237724-7 (Version None)
Quarter: 2011Q1

REPORT INFORMATION
  Report Type: 
  Country: None (occurrence: None)
  Receive Date: 20110121
  Receipt Date: 20110118
  Transmission Date: 20110831
  Serious: Yes (Death)
  Sender: FDA-Public Use
  Company Number: PHHY2011US03941

PATIENT
  Sex: Male
  Weight: 48.526 kg

DRUGS (1)
  1. EXJADE [Suspect]
     Indication: LYMPHATIC SYSTEM NEOPLASM
     Dosage: 1250 MG, QD
     Route: 048
     Dates: start: 20100101, end: 20101101

REACTIONS (1)
  - DEATH [None]
